FAERS Safety Report 8973925 (Version 1)
Quarter: 2012Q4

REPORT INFORMATION
  Report Type: 
  Country: CA (occurrence: CA)
  Receive Date: 20121218
  Receipt Date: 20121218
  Transmission Date: 20130627
  Serious: Yes (Hospitalization, Other)
  Sender: FDA-Public Use
  Company Number: PHHY2012CA115191

PATIENT
  Age: 17 Month
  Sex: Female

DRUGS (1)
  1. OLANZAPINE [Suspect]
     Dosage: 28 mg, UNK
     Route: 048

REACTIONS (6)
  - Respiratory distress [Unknown]
  - Extrapyramidal disorder [Unknown]
  - Pyrexia [Unknown]
  - Accidental exposure to product [Unknown]
  - Blood prolactin increased [Unknown]
  - Accidental overdose [Unknown]
